FAERS Safety Report 5198165-X (Version None)
Quarter: 2007Q1

REPORT INFORMATION
  Report Type: 
  Country: None (occurrence: None)
  Receive Date: 20070104
  Receipt Date: 20070103
  Transmission Date: 20070707
  Serious: Yes (Other)
  Sender: FDA-Public Use
  Company Number: US-GLAXOSMITHKLINE-A0633124A

PATIENT
  Age: 38 Year
  Sex: Female

DRUGS (9)
  1. NICODERM CQ [Suspect]
     Indication: SMOKING CESSATION THERAPY
     Route: 062
     Dates: start: 20061229, end: 20070102
  2. GLUTEN [Suspect]
     Dates: start: 20061231
  3. ROLAIDS [Concomitant]
  4. ZYRTEC [Concomitant]
  5. NASONEX [Concomitant]
  6. PULMICORT [Concomitant]
  7. ALBUTEROL [Concomitant]
  8. KLONOPIN [Concomitant]
  9. VITAMIN [Concomitant]

REACTIONS (8)
  - CONVULSION [None]
  - DYSKINESIA [None]
  - HYPOAESTHESIA [None]
  - MUSCULOSKELETAL STIFFNESS [None]
  - MYOCLONUS [None]
  - PARAESTHESIA [None]
  - RASH [None]
  - TREMOR [None]
